FAERS Safety Report 21332464 (Version 1)
Quarter: 2022Q3

REPORT INFORMATION
  Report Type: Report from Study
  Country: US (occurrence: US)
  Receive Date: 20220914
  Receipt Date: 20220914
  Transmission Date: 20221027
  Serious: Yes (Hospitalization)
  Sender: FDA-Public Use
  Company Number: US-IPSEN Group, Research and Development-2021-06015

PATIENT
  Age: 58 Year
  Sex: Female
  Weight: 61.2 kg

DRUGS (18)
  1. DYSPORT [Suspect]
     Active Substance: ABOBOTULINUMTOXINA
     Indication: Muscle spasticity
     Dosage: 1500 IU
     Route: 030
     Dates: start: 20200303, end: 20200303
  2. TOPAMAX [Concomitant]
     Active Substance: TOPIRAMATE
     Dosage: AT BED TIME
     Route: 048
  3. WELLBUTRIN [Concomitant]
     Active Substance: BUPROPION HYDROCHLORIDE
     Route: 048
  4. NITROSTAT [Concomitant]
     Active Substance: NITROGLYCERIN
     Indication: Chest pain
     Dosage: 5 MINUTES X 3 AS NEEDED FOR CHEST PAIN
     Route: 060
  5. ASPIRIN [Concomitant]
     Active Substance: ASPIRIN
     Dosage: MAX DOSE=4,000 MG PER 24 HOURS FROM ALL SOURCES OF ASPIRIN
     Route: 048
  6. PLAVIX [Concomitant]
     Active Substance: CLOPIDOGREL BISULFATE
     Dosage: EVERY MORNING
     Route: 048
  7. CARVEDILOL [Concomitant]
     Active Substance: CARVEDILOL
     Route: 048
  8. CRESTOR [Concomitant]
     Active Substance: ROSUVASTATIN CALCIUM
     Dosage: EVERY MORNING
     Route: 048
  9. DEPAKOTE [Concomitant]
     Active Substance: DIVALPROEX SODIUM
     Route: 048
  10. PANTOPRAZOLE SODIUM [Concomitant]
     Active Substance: PANTOPRAZOLE SODIUM
     Dosage: BEFORE MEALS
     Route: 048
  11. TAB-A-VITE [Concomitant]
     Route: 048
  12. NUEDEXTA [Concomitant]
     Active Substance: DEXTROMETHORPHAN HYDROBROMIDE\QUINIDINE SULFATE
     Route: 048
  13. VITAMIN D [Concomitant]
     Active Substance: VITAMIN D NOS
     Route: 048
  14. VITAMIN C [Concomitant]
     Active Substance: ASCORBIC ACID
     Route: 048
  15. FISH OIL [Concomitant]
     Active Substance: FISH OIL
     Route: 048
  16. VITAMIN B12 [Concomitant]
     Active Substance: CYANOCOBALAMIN
     Route: 048
  17. VITAMIN E [Concomitant]
     Active Substance: .ALPHA.-TOCOPHEROL
     Route: 048
  18. MELATONIN [Concomitant]
     Active Substance: MELATONIN
     Dosage: BED TIME
     Route: 048

REACTIONS (2)
  - Colitis [Recovered/Resolved]
  - Drug ineffective [Unknown]

NARRATIVE: CASE EVENT DATE: 20200101
